FAERS Safety Report 20635254 (Version 3)
Quarter: 2022Q2

REPORT INFORMATION
  Report Type: Report from Study
  Country: FR (occurrence: FR)
  Receive Date: 20220325
  Receipt Date: 20220613
  Transmission Date: 20220720
  Serious: Yes (Hospitalization)
  Sender: FDA-Public Use
  Company Number: FR-JNJFOC-20220333985

PATIENT
  Age: 64 Year
  Sex: Female

DRUGS (5)
  1. SPRAVATO [Suspect]
     Active Substance: ESKETAMINE
     Indication: Depression
     Dates: start: 20210202
  2. SPRAVATO [Suspect]
     Active Substance: ESKETAMINE
     Dates: end: 20210323
  3. SPRAVATO [Suspect]
     Active Substance: ESKETAMINE
     Dates: end: 20210401
  4. PRAVASTATIN [Concomitant]
     Active Substance: PRAVASTATIN
     Indication: Hypercholesterolaemia
     Route: 065
  5. VORTIOXETINE [Concomitant]
     Active Substance: VORTIOXETINE
     Route: 065

REACTIONS (4)
  - Fall [Recovered/Resolved]
  - Femoral neck fracture [Recovered/Resolved with Sequelae]
  - Clavicle fracture [Recovered/Resolved]
  - Ankle fracture [Recovered/Resolved with Sequelae]

NARRATIVE: CASE EVENT DATE: 20210401
